FAERS Safety Report 8866154 (Version 2)
Quarter: 2013Q1

REPORT INFORMATION
  Report Type: Spontaneous
  Country: JP (occurrence: JP)
  Receive Date: 20121025
  Receipt Date: 20130107
  Transmission Date: 20140127
  Serious: Yes (Hospitalization, Other)
  Sender: FDA-Public Use
  Company Number: JP-ROCHE-1133162

PATIENT
  Sex: Male
  Weight: 74 kg

DRUGS (9)
  1. MIRCERA [Suspect]
     Indication: NEPHROGENIC ANAEMIA
     Route: 042
     Dates: start: 20120816, end: 20120816
  2. MIRCERA [Suspect]
     Route: 042
     Dates: start: 20120405, end: 20120510
  3. NESP [Concomitant]
     Indication: NEPHROGENIC ANAEMIA
     Route: 065
     Dates: start: 20120614, end: 20120712
  4. NESP [Concomitant]
     Route: 065
     Dates: start: 20121012
  5. MICARDIS [Concomitant]
     Indication: HYPERTENSION
     Route: 048
     Dates: start: 20060404
  6. SELOKEN [Concomitant]
     Indication: HYPERTENSION
     Route: 048
     Dates: start: 20120816, end: 20121109
  7. LANSOPRAZOLE [Concomitant]
     Indication: GASTRITIS PROPHYLAXIS
     Route: 048
     Dates: start: 20101111, end: 20121210
  8. ATELEC [Concomitant]
     Indication: HYPERTENSION
     Route: 048
     Dates: start: 20081009
  9. MARZULENE-S [Concomitant]
     Indication: GASTRITIS PROPHYLAXIS
     Route: 048
     Dates: start: 20051211

REACTIONS (2)
  - Dermatitis allergic [Not Recovered/Not Resolved]
  - Anaemia [Recovered/Resolved]
